FAERS Safety Report 14923546 (Version 1)
Quarter: 2018Q2

REPORT INFORMATION
  Report Type: Spontaneous
  Country: US (occurrence: US)
  Receive Date: 20180522
  Receipt Date: 20180522
  Transmission Date: 20180711
  Serious: Yes (Death)
  Sender: FDA-Public Use
  Company Number: US-PFIZER INC-2018203492

PATIENT
  Age: 59 Month
  Sex: Male

DRUGS (6)
  1. METHOTREXATE SODIUM. [Suspect]
     Active Substance: METHOTREXATE SODIUM
     Indication: OSTEOSARCOMA
     Dosage: UNK (HIGH-DOSE)
  2. LEUCOVORIN. [Concomitant]
     Active Substance: LEUCOVORIN
     Indication: OSTEOSARCOMA
     Dosage: UNK
  3. DYNAPEN [Concomitant]
     Active Substance: DICLOXACILLIN SODIUM
     Indication: OSTEOSARCOMA
     Dosage: UNK
  4. ADRIAMYCIN [Concomitant]
     Active Substance: DOXORUBICIN HYDROCHLORIDE
     Indication: OSTEOSARCOMA
     Dosage: UNK
  5. METHOTREXATE SODIUM. [Suspect]
     Active Substance: METHOTREXATE SODIUM
     Dosage: UNK (SECOND TREATMENT)
  6. CYCLOPHOSPHAMIDE. [Concomitant]
     Active Substance: CYCLOPHOSPHAMIDE
     Indication: OSTEOSARCOMA
     Dosage: UNK

REACTIONS (8)
  - Pseudomonas infection [Fatal]
  - Nausea [Fatal]
  - Toxicity to various agents [Fatal]
  - Bone marrow failure [Fatal]
  - Liver disorder [Fatal]
  - Vomiting [Fatal]
  - Sepsis [Fatal]
  - Ulcer [Fatal]
